APPROVED DRUG PRODUCT: PREVACID
Active Ingredient: LANSOPRAZOLE
Strength: 15MG
Dosage Form/Route: TABLET, ORALLY DISINTEGRATING, DELAYED RELEASE;ORAL
Application: N021428 | Product #001 | TE Code: AB
Applicant: TAKEDA PHARMACEUTICALS USA INC
Approved: Aug 30, 2002 | RLD: Yes | RS: No | Type: RX